FAERS Safety Report 7166395-3 (Version None)
Quarter: 2010Q4

REPORT INFORMATION
  Report Type: 
  Country: None (occurrence: None)
  Receive Date: 20101216
  Receipt Date: 20101202
  Transmission Date: 20110411
  Serious: No
  Sender: FDA-Public Use
  Company Number: US-ABBOTT-10P-163-0688908-00

PATIENT
  Sex: Female
  Weight: 78.996 kg

DRUGS (7)
  1. TRILIPIX [Suspect]
     Indication: BLOOD CHOLESTEROL INCREASED
     Dates: start: 20101114, end: 20101118
  2. DIOVAN [Concomitant]
     Indication: HYPERTENSION
  3. HYDROCHLOROTHIAZE [Concomitant]
     Indication: HYPERTENSION
     Dosage: OCCASSIONA
  4. OMEPRAZOLE [Concomitant]
     Indication: HERNIA
  5. ESTRADIOL [Concomitant]
     Indication: HYSTERECTOMY
     Dosage: EOD
  6. VITAMIN B-12 [Concomitant]
     Indication: VITAMIN SUPPLEMENTATION
     Dosage: DAILY
  7. DICLOFENAC [Concomitant]
     Indication: BACK PAIN

REACTIONS (3)
  - BONE PAIN [None]
  - HEADACHE [None]
  - NAUSEA [None]
